FAERS Safety Report 18756902 (Version 3)
Quarter: 2021Q3

REPORT INFORMATION
  Report Type: Report from Study
  Country: BR (occurrence: BR)
  Receive Date: 20210119
  Receipt Date: 20210716
  Transmission Date: 20211014
  Serious: Yes (Death, Hospitalization, Other)
  Sender: FDA-Public Use
  Company Number: BR-TAKEDA-BR202022983

PATIENT
  Age: 16 Year
  Sex: Male
  Weight: 36 kg

DRUGS (3)
  1. IDURSULFASE [Suspect]
     Active Substance: IDURSULFASE
     Indication: MUCOPOLYSACCHARIDOSIS II
     Dosage: UNK UNK, 1X/WEEK
     Route: 042
     Dates: start: 20090306, end: 20180910
  2. IDURSULFASE [Suspect]
     Active Substance: IDURSULFASE
     Dosage: 0.35 MILLIGRAM/KILOGRAM, 1X/WEEK
     Route: 042
     Dates: start: 20090318
  3. IDURSULFASE [Suspect]
     Active Substance: IDURSULFASE
     Indication: MUCOPOLYSACCHARIDOSIS III
     Dosage: 0.35 MILLIGRAM/KILOGRAM, 1X/WEEK
     Route: 042
     Dates: start: 20090828

REACTIONS (1)
  - Cardiac arrest [Fatal]

NARRATIVE: CASE EVENT DATE: 20200708
